FAERS Safety Report 8392739 (Version 2)
Quarter: 2012Q4

REPORT INFORMATION
  Report Type: 
  Country: BR (occurrence: BR)
  Receive Date: 20120206
  Receipt Date: 20121004
  Transmission Date: 20130627
  Serious: Yes (Hospitalization)
  Sender: FDA-Public Use
  Company Number: BR-ASTRAZENECA-2012SE06449

PATIENT
  Age: 74 Year
  Sex: Male
  Weight: 99 kg

DRUGS (7)
  1. ATACAND HCT [Suspect]
     Indication: HYPERTENSION
     Dosage: 16/12.5MG
     Route: 048
     Dates: start: 2011
  2. NEXIUM [Suspect]
     Route: 048
  3. ANCORON [Concomitant]
     Indication: THROMBOSIS
     Route: 048
  4. PAROXETINE [Concomitant]
     Route: 048
  5. LIPITOR [Concomitant]
     Route: 048
  6. ASA [Concomitant]
     Route: 048
  7. SOMALGIN [Concomitant]
     Route: 048

REACTIONS (1)
  - Arterial occlusive disease [Unknown]
